FAERS Safety Report 18648510 (Version 1)
Quarter: 2020Q4

REPORT INFORMATION
  Report Type: Spontaneous
  Country: US (occurrence: US)
  Receive Date: 20201222
  Receipt Date: 20201222
  Transmission Date: 20210114
  Serious: Yes (Hospitalization)
  Sender: FDA-Public Use
  Company Number: US-PFIZER INC-2020505699

PATIENT
  Age: 74 Year
  Sex: Female

DRUGS (1)
  1. IBRANCE [Suspect]
     Active Substance: PALBOCICLIB
     Dosage: UNK
     Dates: end: 20201130

REACTIONS (5)
  - Gait disturbance [Unknown]
  - Joint swelling [Unknown]
  - Fall [Unknown]
  - Flat affect [Unknown]
  - Mental fatigue [Unknown]

NARRATIVE: CASE EVENT DATE: 20201128
